FAERS Safety Report 5321517-1 (Version None)
Quarter: 2007Q1

REPORT INFORMATION
  Report Type: 
  Country: None (occurrence: None)
  Receive Date: 20070220
  Receipt Date: 20061128
  Transmission Date: 20070707
  Serious: No
  Sender: FDA-Public Use
  Company Number: TPA2006A02135

PATIENT
  Age: 59 Year
  Sex: Female
  Weight: 108.8633 kg

DRUGS (16)
  1. ROZEREM [Suspect]
     Indication: INSOMNIA
     Dosage: 8 MG, QHS, PER ORAL
     Route: 048
     Dates: start: 20061115
  2. SEROQUEL [Concomitant]
  3. SINGULAIR [Concomitant]
  4. ADVAIR DISKUS 100/50 [Concomitant]
  5. THEO-DUR [Concomitant]
  6. XOLAIR [Concomitant]
  7. LORATADINE [Concomitant]
  8. FUROSEMIDE [Concomitant]
  9. LISINOPRIL [Concomitant]
  10. METOLAZONE [Concomitant]
  11. GLUCOPHAGE [Concomitant]
  12. ACTONEL [Concomitant]
  13. LEVOTHYROXINE SODIUM [Concomitant]
  14. CALCIUM (CALCIUM) [Concomitant]
  15. POTASSIUM (POTASSIUM) [Concomitant]
  16. MULTIVITAMIN [Concomitant]

REACTIONS (1)
  - BLOOD GLUCOSE INCREASED [None]
